FAERS Safety Report 6658045-7 (Version None)
Quarter: 2010Q1

REPORT INFORMATION
  Report Type: 
  Country: None (occurrence: None)
  Receive Date: 20100326
  Receipt Date: 20100317
  Transmission Date: 20100710
  Serious: Yes (Other)
  Sender: FDA-Public Use
  Company Number: 008959

PATIENT
  Age: 53 Year
  Sex: Female

DRUGS (6)
  1. KEPPRA [Suspect]
     Indication: CONVULSION
     Dosage: 500 MG ORAL, 250 MG ORAL
     Route: 048
     Dates: start: 20100228, end: 20100301
  2. KEPPRA [Suspect]
     Indication: CONVULSION
     Dosage: 500 MG ORAL, 250 MG ORAL
     Route: 048
     Dates: start: 20100312
  3. GABAPENTIN [Suspect]
     Dosage: UNKNOWN DOSE
  4. IMITREX /01044801/ [Concomitant]
  5. ZOMIG [Concomitant]
  6. XANAX [Concomitant]

REACTIONS (9)
  - ABNORMAL DREAMS [None]
  - ANGER [None]
  - ANGIOEDEMA [None]
  - DECREASED APPETITE [None]
  - FLUID RETENTION [None]
  - RASH [None]
  - SOMNOLENCE [None]
  - URTICARIA [None]
  - WEIGHT DECREASED [None]
